FAERS Safety Report 16807097 (Version 6)
Quarter: 2020Q4

REPORT INFORMATION
  Report Type: Spontaneous
  Country: BR (occurrence: BR)
  Receive Date: 20190913
  Receipt Date: 20201111
  Transmission Date: 20210113
  Serious: Yes (Other)
  Sender: FDA-Public Use
  Company Number: BR-GLAXOSMITHKLINE-BR2019AMR164412

PATIENT
  Age: 65 Year
  Sex: Female
  Weight: 75 kg

DRUGS (3)
  1. DUOVENT [Suspect]
     Active Substance: FENOTEROL HYDROBROMIDE
     Indication: ASTHMA
     Dosage: UNK, 3 TIMES A DAY
  2. ALENIA (BUDESONIDA + FORMOTEROL) [Suspect]
     Active Substance: BUDESONIDE\FORMOTEROL FUMARATE
     Indication: ASTHMA
     Dosage: UNK
  3. NUCALA [Suspect]
     Active Substance: MEPOLIZUMAB
     Indication: ASTHMA
     Dosage: 100 MG, UNK
     Dates: start: 20190806

REACTIONS (10)
  - Cataract [Unknown]
  - Dizziness [Unknown]
  - Condition aggravated [Unknown]
  - Asthmatic crisis [Unknown]
  - Rhinitis [Unknown]
  - Drug ineffective [Unknown]
  - Dysgeusia [Unknown]
  - Inappropriate schedule of product administration [Unknown]
  - Vision blurred [Unknown]
  - Dependence [Unknown]

NARRATIVE: CASE EVENT DATE: 202011
